FAERS Safety Report 4637852-6 (Version None)
Quarter: 2005Q2

REPORT INFORMATION
  Report Type: 
  Country: None (occurrence: None)
  Receive Date: 20050418
  Receipt Date: 20050412
  Transmission Date: 20051028
  Serious: Yes (Hospitalization)
  Sender: FDA-Public Use
  Company Number: US-JNJFOC-20050403126

PATIENT
  Sex: Female
  Weight: 61.24 kg

DRUGS (5)
  1. DURAGESIC-100 [Suspect]
     Indication: DRUG USE FOR UNKNOWN INDICATION
     Route: 062
  2. DITROPAN XL [Concomitant]
  3. VICODIN [Concomitant]
  4. VICODIN [Concomitant]
  5. CHOLESTEROL MED [Concomitant]

REACTIONS (3)
  - HYPERVENTILATION [None]
  - TREMOR [None]
  - VOMITING [None]
